FAERS Safety Report 19054209 (Version 2)
Quarter: 2021Q1

REPORT INFORMATION
  Report Type: Spontaneous
  Country: CA (occurrence: CA)
  Receive Date: 20210325
  Receipt Date: 20210331
  Transmission Date: 20210420
  Serious: Yes (Life-Threatening, Other)
  Sender: FDA-Public Use
  Company Number: CA-TERSERA THERAPEUTICS LLC-2021TRS000678

PATIENT

DRUGS (15)
  1. XERMELO [Suspect]
     Active Substance: TELOTRISTAT ETHYL
     Indication: 5-HYDROXYINDOLACETIC ACID
     Dosage: 500 MG, Q8H (EACH 8 HR)
     Route: 048
     Dates: start: 20210122, end: 20210201
  2. OCTREOTIDE. [Concomitant]
     Active Substance: OCTREOTIDE
     Indication: NEUROENDOCRINE TUMOUR
     Dosage: 300 MCG, QID, EVERY 6 HRS
     Route: 058
  3. OCTREOTIDE. [Concomitant]
     Active Substance: OCTREOTIDE
     Dosage: 500 MCG, EVERY 8 HR
     Route: 058
     Dates: start: 20210122
  4. VITAMIN D [COLECALCIFEROL] [Concomitant]
     Active Substance: CHOLECALCIFEROL
     Indication: PRODUCT USED FOR UNKNOWN INDICATION
     Dosage: UNK, QD
     Route: 048
  5. ATORVASTATIN [Concomitant]
     Active Substance: ATORVASTATIN
     Indication: DYSLIPIDAEMIA
     Dosage: 10 MG, QD
     Route: 048
  6. LASIX [Concomitant]
     Active Substance: FUROSEMIDE
     Indication: PRODUCT USED FOR UNKNOWN INDICATION
     Dosage: 20 MG, QD
     Route: 048
     Dates: start: 20200617
  7. OCTREOTIDE. [Concomitant]
     Active Substance: OCTREOTIDE
     Indication: PROPHYLAXIS
     Dosage: 100 MCG, QID, (EVERY 6HR)
     Route: 058
     Dates: start: 20201020, end: 2020
  8. ASPIRIN [ACETYLSALICYLIC ACID] [Concomitant]
     Active Substance: ASPIRIN
     Indication: PRODUCT USED FOR UNKNOWN INDICATION
     Dosage: 81 MG, QD
     Route: 048
     Dates: start: 20200513, end: 20200513
  9. BABY ASPIRIN [Concomitant]
     Active Substance: ASPIRIN
     Indication: PRODUCT USED FOR UNKNOWN INDICATION
     Dosage: UNK
     Route: 065
     Dates: start: 202005, end: 202005
  10. XERMELO [Suspect]
     Active Substance: TELOTRISTAT ETHYL
     Dosage: UNK
     Route: 048
     Dates: start: 20210202
  11. CALCIUM [Concomitant]
     Active Substance: CALCIUM
     Indication: PRODUCT USED FOR UNKNOWN INDICATION
     Dosage: UNK, QD
     Route: 048
  12. SOMATULINE AUTOGEL [Suspect]
     Active Substance: LANREOTIDE ACETATE
     Indication: NEUROENDOCRINE TUMOUR
     Dosage: 120 MG, EVERY 4 WEEKS
     Route: 058
     Dates: start: 20200506, end: 2020
  13. SOMATULINE AUTOGEL [Suspect]
     Active Substance: LANREOTIDE ACETATE
     Dosage: 120 MG, EVERY 2 WEEKS
     Route: 058
     Dates: start: 20200806
  14. OCTREOTIDE. [Concomitant]
     Active Substance: OCTREOTIDE
     Indication: FLUSHING
     Dosage: 200 MCG, QID, EVERY 6 HRS
     Route: 058
     Dates: start: 20201107, end: 2020
  15. XERMELO [Suspect]
     Active Substance: TELOTRISTAT ETHYL
     Indication: CARCINOID SYNDROME
     Dosage: 250 MG, TID
     Route: 048
     Dates: start: 20201029, end: 20210121

REACTIONS (29)
  - Back pain [Not Recovered/Not Resolved]
  - Vascular access site haemorrhage [Recovered/Resolved]
  - Pain in extremity [Recovering/Resolving]
  - Irritability [Not Recovered/Not Resolved]
  - Malaise [Recovering/Resolving]
  - Constipation [Recovered/Resolved]
  - Cyanosis [Recovered/Resolved]
  - Vessel puncture site induration [Recovering/Resolving]
  - Flushing [Not Recovered/Not Resolved]
  - Off label use [Unknown]
  - Off label use [Unknown]
  - Musculoskeletal discomfort [Recovering/Resolving]
  - Dyspnoea [Unknown]
  - Feeling hot [Recovering/Resolving]
  - Crying [Unknown]
  - Radial pulse decreased [Recovering/Resolving]
  - Dizziness postural [Not Recovered/Not Resolved]
  - Affect lability [Not Recovered/Not Resolved]
  - Drug ineffective [Unknown]
  - Pulmonary embolism [Recovering/Resolving]
  - Tricuspid valve disease [Not Recovered/Not Resolved]
  - Hypoaesthesia [Recovering/Resolving]
  - X-ray abnormal [Not Recovered/Not Resolved]
  - Flushing [Recovered/Resolved]
  - Chills [Unknown]
  - Genital haemorrhage [Recovering/Resolving]
  - Haematoma [Recovering/Resolving]
  - Fatigue [Not Recovered/Not Resolved]
  - Energy increased [Not Recovered/Not Resolved]

NARRATIVE: CASE EVENT DATE: 2020
